FAERS Safety Report 11465770 (Version 1)
Quarter: 2015Q3

REPORT INFORMATION
  Report Type: Report from Study
  Country: US (occurrence: US)
  Receive Date: 20150907
  Receipt Date: 20150907
  Transmission Date: 20151125
  Serious: Yes (Other)
  Sender: FDA-Public Use
  Company Number: US-PFIZER INC-2015287099

PATIENT
  Sex: Male
  Weight: 3.63 kg

DRUGS (2)
  1. PHENYTOIN SODIUM. [Suspect]
     Active Substance: PHENYTOIN SODIUM
     Indication: GENERALISED TONIC-CLONIC SEIZURE
     Dosage: 100 MG, UNK
     Route: 064
  2. PHENOBARBITAL. [Concomitant]
     Active Substance: PHENOBARBITAL
     Indication: GENERALISED TONIC-CLONIC SEIZURE
     Dosage: 100 MG, UNK
     Route: 064

REACTIONS (3)
  - Coagulation disorder neonatal [Recovering/Resolving]
  - Haematuria [Recovering/Resolving]
  - Maternal exposure during pregnancy [Unknown]
